FAERS Safety Report 6802610-0 (Version None)
Quarter: 2010Q2

REPORT INFORMATION
  Report Type: 
  Country: None (occurrence: None)
  Receive Date: 20100628
  Receipt Date: 20100618
  Transmission Date: 20101027
  Serious: Yes (Other)
  Sender: FDA-Public Use
  Company Number: CN-JNJFOC-20100606340

PATIENT
  Age: 28 Year
  Sex: Female

DRUGS (6)
  1. RISPERDAL [Suspect]
     Indication: DEPRESSION
     Route: 048
  2. RISPERDAL [Suspect]
     Indication: SCHIZOPHRENIA
     Route: 048
  3. RISPERDAL [Suspect]
     Route: 048
  4. RISPERDAL [Suspect]
     Route: 048
  5. RISPERDAL [Suspect]
     Route: 048
  6. RISPERDAL [Suspect]
     Route: 048

REACTIONS (4)
  - BLOOD PROLACTIN INCREASED [None]
  - DRUG EXPOSURE DURING PREGNANCY [None]
  - GALACTORRHOEA [None]
  - PITUITARY ENLARGEMENT [None]
